FAERS Safety Report 10427562 (Version 2)
Quarter: 2014Q3

REPORT INFORMATION
  Report Type: Spontaneous
  Country: FR (occurrence: FR)
  Receive Date: 20140903
  Receipt Date: 20140929
  Transmission Date: 20150326
  Serious: Yes (Other)
  Sender: FDA-Public Use
  Company Number: FR-PFIZER INC-2014242286

PATIENT
  Age: 71 Year
  Sex: Male

DRUGS (3)
  1. ORGARAN [Suspect]
     Active Substance: DANAPAROID SODIUM
     Dosage: 2250 IU, 1X/DAY
     Route: 040
     Dates: start: 20140717, end: 20140717
  2. ARGANOVA [Suspect]
     Active Substance: ARGATROBAN
     Dosage: 17.2 MG, 1X/DAY
     Route: 041
     Dates: start: 20140718, end: 20140721
  3. CALCIPARINE [Suspect]
     Active Substance: HEPARIN CALCIUM
     Indication: ANTICOAGULANT THERAPY
     Dosage: 0.2 ML, 3X/DAY (5000 IU EVERY 8 HOURS)
     Route: 058
     Dates: start: 20140714, end: 20140716

REACTIONS (1)
  - Thrombocytopenia [Recovered/Resolved]

NARRATIVE: CASE EVENT DATE: 20140719
